FAERS Safety Report 12619235 (Version 3)
Quarter: 2016Q3

REPORT INFORMATION
  Report Type: Report from Study
  Country: US (occurrence: US)
  Receive Date: 20160803
  Receipt Date: 20160825
  Transmission Date: 20161109
  Serious: Yes (Hospitalization, Other)
  Sender: FDA-Public Use
  Company Number: US-GILEAD-2016-0226484

PATIENT
  Age: 8 Year
  Sex: Male

DRUGS (10)
  1. FLAGYL [Suspect]
     Active Substance: METRONIDAZOLE\METRONIDAZOLE HYDROCHLORIDE
     Indication: PRODUCT USED FOR UNKNOWN INDICATION
     Route: 065
  2. TUMS KIDS [Concomitant]
  3. ADCIRCA [Concomitant]
     Active Substance: TADALAFIL
  4. LEVETIRACETAM. [Concomitant]
     Active Substance: LEVETIRACETAM
  5. PYRIDOXINE [Concomitant]
     Active Substance: PYRIDOXINE
  6. BABY ASPIRIN [Concomitant]
     Active Substance: ASPIRIN
  7. TYVASO [Concomitant]
     Active Substance: TREPROSTINIL
  8. FUROSEMIDE. [Concomitant]
     Active Substance: FUROSEMIDE
  9. AMBRISENTAN [Suspect]
     Active Substance: AMBRISENTAN
     Indication: PULMONARY ARTERIAL HYPERTENSION
     Dosage: 5 MG, QD
     Route: 048
  10. DIASTAT ACUDIAL [Concomitant]
     Active Substance: DIAZEPAM

REACTIONS (5)
  - Clostridium difficile infection [Recovered/Resolved]
  - Joint swelling [Not Recovered/Not Resolved]
  - Adenotonsillectomy [Recovered/Resolved]
  - Off label use [Not Recovered/Not Resolved]
  - Arthritis reactive [Unknown]

NARRATIVE: CASE EVENT DATE: 20160731
